FAERS Safety Report 16738952 (Version 4)
Quarter: 2020Q2

REPORT INFORMATION
  Report Type: Report from Study
  Country: US (occurrence: US)
  Receive Date: 20190826
  Receipt Date: 20200416
  Transmission Date: 20200713
  Serious: Yes (Other)
  Sender: FDA-Public Use
  Company Number: PHEH2019US035149

PATIENT
  Sex: Female

DRUGS (2)
  1. COSENTYX [Suspect]
     Active Substance: SECUKINUMAB
     Dosage: UNK UNK, Q4W
     Route: 058
  2. COSENTYX [Suspect]
     Active Substance: SECUKINUMAB
     Indication: PSORIATIC ARTHROPATHY
     Dosage: UNK UNK, QW (FOR 5 WEEKS)
     Route: 058
     Dates: start: 20190803

REACTIONS (6)
  - Wound [Recovering/Resolving]
  - Injection site pain [Unknown]
  - Joint swelling [Unknown]
  - Oedema [Unknown]
  - Peripheral swelling [Unknown]
  - Psoriatic arthropathy [Unknown]
